FAERS Safety Report 16211718 (Version 1)
Quarter: 2019Q2

REPORT INFORMATION
  Report Type: Spontaneous
  Country: US (occurrence: US)
  Receive Date: 20190314
  Receipt Date: 20190314
  Transmission Date: 20190711
  Serious: No
  Sender: FDA-Public Use
  Company Number: None

PATIENT
  Age: 32 Year
  Sex: Female
  Weight: 100.24 kg

DRUGS (1)
  1. METHOTREXATE. [Suspect]
     Active Substance: METHOTREXATE
     Indication: RASH
     Route: 048
     Dates: start: 20181002, end: 20181128

REACTIONS (9)
  - Photophobia [None]
  - Vomiting [None]
  - Decreased appetite [None]
  - Headache [None]
  - Abdominal pain [None]
  - Nausea [None]
  - Loss of consciousness [None]
  - Vision blurred [None]
  - Retching [None]

NARRATIVE: CASE EVENT DATE: 20181128
